FAERS Safety Report 25356007 (Version 1)
Quarter: 2025Q2

REPORT INFORMATION
  Report Type: Report from Study
  Country: GB (occurrence: GB)
  Receive Date: 20250525
  Receipt Date: 20250525
  Transmission Date: 20250716
  Serious: Yes (Other)
  Sender: ABBVIE
  Company Number: GB-ABBVIE-6291988

PATIENT
  Age: 44 Year
  Sex: Male

DRUGS (1)
  1. SKYRIZI [Suspect]
     Active Substance: RISANKIZUMAB-RZAA
     Indication: Crohn^s disease
     Route: 058
     Dates: start: 20241104

REACTIONS (2)
  - Blood magnesium decreased [Recovering/Resolving]
  - Stoma creation [Recovered/Resolved]

NARRATIVE: CASE EVENT DATE: 20250401
